FAERS Safety Report 6768627-X (Version None)
Quarter: 2010Q2

REPORT INFORMATION
  Report Type: 
  Country: None (occurrence: None)
  Receive Date: 20100614
  Receipt Date: 20100510
  Transmission Date: 20101027
  Serious: Yes (Other)
  Sender: FDA-Public Use
  Company Number: JP-PFIZER INC-2010062135

PATIENT
  Age: 78 Year
  Sex: Male

DRUGS (1)
  1. CELECOX [Suspect]
     Dosage: 100 MG, 1X/DAY
     Route: 048
     Dates: start: 20100405, end: 20100415

REACTIONS (1)
  - ASCITES [None]
